FAERS Safety Report 16781134 (Version 1)
Quarter: 2019Q3

REPORT INFORMATION
  Report Type: Spontaneous
  Country: US (occurrence: US)
  Receive Date: 20190906
  Receipt Date: 20190906
  Transmission Date: 20191005
  Serious: No
  Sender: FDA-Public Use
  Company Number: US-SA-2018SA123112

PATIENT
  Age: 77 Year
  Sex: Male

DRUGS (2)
  1. PRALUENT [Suspect]
     Active Substance: ALIROCUMAB
     Dosage: 75 MG,UNK
     Route: 058
  2. PRALUENT [Suspect]
     Active Substance: ALIROCUMAB
     Dosage: 75 MG, UNK
     Route: 058
     Dates: start: 201808

REACTIONS (2)
  - Hot flush [Unknown]
  - Product dose omission [Unknown]

NARRATIVE: CASE EVENT DATE: 20190807
